FAERS Safety Report 5776809-9 (Version None)
Quarter: 2008Q2

REPORT INFORMATION
  Report Type: 
  Country: None (occurrence: None)
  Receive Date: 20080601
  Receipt Date: 20080110
  Transmission Date: 20081010
  Serious: No
  Sender: FDA-Public Use
  Company Number: US200712002187

PATIENT
  Age: 67 Year
  Sex: Female
  Weight: 136.1 kg

DRUGS (6)
  1. BYETTA [Suspect]
     Indication: WEIGHT CONTROL
     Dosage: SUBCUTANEOUS; 5 UG, 2/D, SUBCUTANEOUS
     Route: 058
     Dates: start: 20070101
  2. BYETTA [Suspect]
     Indication: WEIGHT DECREASED
     Dosage: SUBCUTANEOUS; 5 UG, 2/D, SUBCUTANEOUS
     Route: 058
     Dates: start: 20070101
  3. BYETTA [Suspect]
     Indication: WEIGHT CONTROL
     Dosage: SUBCUTANEOUS; 5 UG, 2/D, SUBCUTANEOUS
     Route: 058
     Dates: start: 20071120
  4. BYETTA [Suspect]
     Indication: WEIGHT DECREASED
     Dosage: SUBCUTANEOUS; 5 UG, 2/D, SUBCUTANEOUS
     Route: 058
     Dates: start: 20071120
  5. METFORMIN HCL [Concomitant]
  6. GLIPIZIDE [Concomitant]

REACTIONS (4)
  - BLOOD GLUCOSE INCREASED [None]
  - DRUG EFFECT DECREASED [None]
  - SOMNOLENCE [None]
  - WEIGHT DECREASED [None]
